FAERS Safety Report 19406470 (Version 1)
Quarter: 2021Q2

REPORT INFORMATION
  Report Type: Report from Study
  Country: CA (occurrence: CA)
  Receive Date: 20210611
  Receipt Date: 20210611
  Transmission Date: 20210717
  Serious: Yes (Other)
  Sender: FDA-Public Use
  Company Number: CA-TAKEDA-2016TUS012747

PATIENT
  Age: 42 Year
  Sex: Female

DRUGS (9)
  1. VEDOLIZUMAB [Suspect]
     Active Substance: VEDOLIZUMAB
     Dosage: 300 MILLIGRAM
     Route: 042
  2. VITAMIN D NOS [Concomitant]
     Active Substance: VITAMIN D NOS
     Dosage: 10000 INTERNATIONAL UNIT, 1/WEEK
  3. VEDOLIZUMAB [Suspect]
     Active Substance: VEDOLIZUMAB
     Dosage: 300 MILLIGRAM
     Route: 042
  4. VEDOLIZUMAB [Suspect]
     Active Substance: VEDOLIZUMAB
     Indication: COLITIS ULCERATIVE
     Dosage: 300 MILLIGRAM
     Route: 042
     Dates: start: 20160603
  5. JAMP CALCIUM [Concomitant]
     Dosage: 500 MILLIGRAM, BID
  6. VEDOLIZUMAB [Suspect]
     Active Substance: VEDOLIZUMAB
     Dosage: 300 MILLIGRAM
     Route: 042
  7. APO?SULFATRIM [Concomitant]
     Active Substance: SULFAMETHOXAZOLE\TRIMETHOPRIM
     Indication: PROPHYLAXIS
     Dosage: 160 MILLIGRAM, BID
     Dates: start: 20160429
  8. DOM?ZOPICLONE [Concomitant]
     Dosage: 5 MILLIGRAM
  9. HUMIRA [Concomitant]
     Active Substance: ADALIMUMAB
     Dosage: UNK UNK, Q2WEEKS
     Route: 058

REACTIONS (12)
  - Fatigue [Unknown]
  - Pharyngeal paraesthesia [Not Recovered/Not Resolved]
  - Diarrhoea [Unknown]
  - Rhinorrhoea [Not Recovered/Not Resolved]
  - Faeces soft [Unknown]
  - Vaginal infection [Recovered/Resolved]
  - Insomnia [Not Recovered/Not Resolved]
  - Diarrhoea infectious [Unknown]
  - Influenza [Unknown]
  - Haematochezia [Unknown]
  - Chills [Recovered/Resolved]
  - Headache [Recovered/Resolved]

NARRATIVE: CASE EVENT DATE: 20161230
